FAERS Safety Report 12231968 (Version 3)
Quarter: 2016Q2

REPORT INFORMATION
  Report Type: Report from Study
  Country: DE (occurrence: DE)
  Receive Date: 20160401
  Receipt Date: 20160503
  Transmission Date: 20160815
  Serious: Yes (Other)
  Sender: FDA-Public Use
  Company Number: DE-INCYTE CORPORATION-2013IN002241

PATIENT
  Age: 77 Year
  Sex: Male
  Weight: 50 kg

DRUGS (41)
  1. INCB018424 [Suspect]
     Active Substance: RUXOLITINIB
     Dosage: 15 MG, PER DAY, TWICE
     Route: 048
     Dates: start: 20140503, end: 20140518
  2. ACETYLSALICYLIC ACID [Suspect]
     Active Substance: ASPIRIN
     Indication: CEREBROVASCULAR ACCIDENT
     Dosage: 100 MG, QD
     Route: 048
     Dates: start: 200903
  3. HYDREA [Concomitant]
     Active Substance: HYDROXYUREA
     Indication: LEUKOCYTOSIS
     Dosage: 500 MG, QD
     Route: 065
     Dates: start: 20140801
  4. TORASEMIDE [Concomitant]
     Active Substance: TORSEMIDE
     Dosage: 10 MG, QD
     Route: 065
     Dates: start: 20131209
  5. SPIRONOLACTONE. [Concomitant]
     Active Substance: SPIRONOLACTONE
     Dosage: 50 MG, QD
     Route: 065
     Dates: start: 20130925, end: 20131119
  6. INCB018424 [Suspect]
     Active Substance: RUXOLITINIB
     Dosage: 10 MG, PER DAY, TWICE
     Route: 048
     Dates: start: 20130904, end: 20130910
  7. INCB018424 [Suspect]
     Active Substance: RUXOLITINIB
     Dosage: 10 MG, PER DAY, TWICE
     Route: 048
     Dates: start: 20140501, end: 20140502
  8. TORASEMIDE [Concomitant]
     Active Substance: TORSEMIDE
     Dosage: 15 MG, QD
     Route: 065
     Dates: start: 201304, end: 20130725
  9. INCB018424 [Suspect]
     Active Substance: RUXOLITINIB
     Dosage: 20 MG, PER DAY, TWICE
     Route: 048
     Dates: start: 20130911, end: 20131029
  10. INCB018424 [Suspect]
     Active Substance: RUXOLITINIB
     Dosage: 10 MG, PER DAY, TWICE
     Route: 048
     Dates: start: 20140328, end: 20140411
  11. INCB018424 [Suspect]
     Active Substance: RUXOLITINIB
     Dosage: 10 MG, PER DAY, TWICE
     Route: 048
     Dates: start: 20141117, end: 20150126
  12. HYDREA [Concomitant]
     Active Substance: HYDROXYUREA
     Dosage: 500 MG, QOD
     Route: 065
     Dates: start: 20150127, end: 20160112
  13. SPIRONOLACTONE. [Concomitant]
     Active Substance: SPIRONOLACTONE
     Dosage: 50 MG,QD
     Route: 065
     Dates: start: 20130726, end: 20131119
  14. AMITRIPTYLINE [Concomitant]
     Active Substance: AMITRIPTYLINE
     Dosage: 10 MG, UNK
     Route: 065
     Dates: start: 20150716, end: 201509
  15. INCB018424 [Suspect]
     Active Substance: RUXOLITINIB
     Dosage: 10 MG, PER DAY, TWICE
     Route: 048
     Dates: start: 20130823, end: 20130827
  16. INCB018424 [Suspect]
     Active Substance: RUXOLITINIB
     Dosage: 20 MG, PER DAY, TWICE
     Route: 048
     Dates: start: 20131130, end: 20131218
  17. INCB018424 [Suspect]
     Active Substance: RUXOLITINIB
     Dosage: 20 MG, PER DAY, TWICE
     Route: 048
     Dates: start: 20140519, end: 20140731
  18. TORASEMIDE [Concomitant]
     Active Substance: TORSEMIDE
     Indication: OEDEMA PERIPHERAL
     Dosage: 15 MG, QD
     Route: 065
     Dates: start: 201304
  19. INCB018424 [Suspect]
     Active Substance: RUXOLITINIB
     Dosage: 20 MG, PER DAY, TWICE
     Route: 048
     Dates: start: 20131031, end: 20131103
  20. INCB018424 [Suspect]
     Active Substance: RUXOLITINIB
     Dosage: 20 MG, PER DAY, TWICE
     Route: 048
     Dates: start: 20131224, end: 20140113
  21. INCB018424 [Suspect]
     Active Substance: RUXOLITINIB
     Dosage: 15 MG, PER DAY, TWICE
     Route: 048
     Dates: start: 20140412, end: 20140430
  22. DUODART [Concomitant]
     Active Substance: DUTASTERIDE\TAMSULOSIN
     Indication: BENIGN PROSTATIC HYPERPLASIA
     Dosage: 0.5/0.4, QD
     Route: 065
     Dates: start: 20130726, end: 201406
  23. VERTIGO [Concomitant]
     Indication: DIZZINESS
     Dosage: 20 DRP, BY NIGHT
     Route: 065
     Dates: start: 20140317
  24. HYDREA [Concomitant]
     Active Substance: HYDROXYUREA
     Indication: PRODUCT USED FOR UNKNOWN INDICATION
     Dosage: 500 MG, QD
     Route: 065
     Dates: start: 20140801, end: 20141202
  25. HYDREA [Concomitant]
     Active Substance: HYDROXYUREA
     Dosage: 500 MG, QD
     Route: 065
     Dates: start: 20160113
  26. TORASEMIDE [Concomitant]
     Active Substance: TORSEMIDE
     Dosage: 10 OT, UNK
     Route: 065
     Dates: start: 20130726, end: 20130802
  27. SPIRONOLACTONE. [Concomitant]
     Active Substance: SPIRONOLACTONE
     Indication: OEDEMA PERIPHERAL
     Dosage: 100 MG, UNK
     Route: 065
  28. SPIRONOLACTONE. [Concomitant]
     Active Substance: SPIRONOLACTONE
     Dosage: 100 MG, QD
     Route: 065
     Dates: end: 20130725
  29. SPIRONOLACTONE. [Concomitant]
     Active Substance: SPIRONOLACTONE
     Dosage: 50 MG,QD
     Route: 065
     Dates: start: 20130727, end: 20131119
  30. PROMETHAZINE [Concomitant]
     Active Substance: PROMETHAZINE\PROMETHAZINE HYDROCHLORIDE
     Indication: PRODUCT USED FOR UNKNOWN INDICATION
     Dosage: 20 DRP, QD
     Route: 065
     Dates: start: 20130925, end: 20131023
  31. INCB018424 [Suspect]
     Active Substance: RUXOLITINIB
     Dosage: 30 MG, PER DAY, TWICE
     Route: 048
     Dates: start: 20131219, end: 20131223
  32. INCB018424 [Suspect]
     Active Substance: RUXOLITINIB
     Dosage: 30 MG, PER DAY, TWICE
     Route: 048
     Dates: start: 20140114, end: 20140328
  33. INCB018424 [Suspect]
     Active Substance: RUXOLITINIB
     Dosage: 15 MG, PER DAY, TWICE
     Route: 048
     Dates: start: 20150127, end: 20150408
  34. INCB018424 [Suspect]
     Active Substance: RUXOLITINIB
     Dosage: 10 MG, QD
     Route: 048
     Dates: start: 20150413, end: 20151207
  35. ACETYLSALICYLIC ACID [Suspect]
     Active Substance: ASPIRIN
     Indication: THROMBOCYTOSIS
  36. SPIRONOLACTONE. [Concomitant]
     Active Substance: SPIRONOLACTONE
     Dosage: 50 OT, QD
     Route: 065
     Dates: start: 20131203
  37. PROMETHAZINE [Concomitant]
     Active Substance: PROMETHAZINE\PROMETHAZINE HYDROCHLORIDE
     Indication: PRURITUS
  38. AMITRIPTYLINE [Concomitant]
     Active Substance: AMITRIPTYLINE
     Indication: BURNING SENSATION
     Dosage: 10 MG, UNK
     Route: 065
     Dates: start: 20140621, end: 201408
  39. INCB018424 [Suspect]
     Active Substance: RUXOLITINIB
     Indication: MYELOFIBROSIS
     Dosage: 30 MG, PER DAY, TWICE
     Route: 048
     Dates: start: 20130720
  40. INCB018424 [Suspect]
     Active Substance: RUXOLITINIB
     Dosage: 20 MG, PER DAY, TWICE
     Route: 048
     Dates: start: 20131107, end: 20131118
  41. INCB018424 [Suspect]
     Active Substance: RUXOLITINIB
     Dosage: 10 MG, QD
     Route: 048
     Dates: start: 20160113, end: 20160205

REACTIONS (12)
  - Thrombocytopenia [Recovered/Resolved]
  - Thrombocytopenia [Recovered/Resolved]
  - Mean cell haemoglobin concentration decreased [Unknown]
  - Gamma-glutamyltransferase increased [Not Recovered/Not Resolved]
  - Blood creatinine increased [Unknown]
  - Mean cell volume decreased [Unknown]
  - Epstein-Barr virus test positive [Unknown]
  - Anaemia [Recovered/Resolved]
  - Leukocytosis [Not Recovered/Not Resolved]
  - Splenomegaly [Not Recovered/Not Resolved]
  - Mean cell haemoglobin decreased [Unknown]
  - Thrombocytopenia [Recovered/Resolved]

NARRATIVE: CASE EVENT DATE: 20130823
